FAERS Safety Report 8915659 (Version 1)
Quarter: 2012Q4

REPORT INFORMATION
  Report Type: 
  Country: JP (occurrence: JP)
  Receive Date: 20121119
  Receipt Date: 20121119
  Transmission Date: 20130627
  Serious: Yes (Other)
  Sender: FDA-Public Use
  Company Number: JP-ROXANE LABORATORIES, INC.-2012-RO-02385RO

PATIENT
  Age: 67 Year
  Sex: Female

DRUGS (4)
  1. RISPERIDONE [Suspect]
     Indication: PSYCHOTIC DISORDER
     Dosage: 3 mg
  2. LITHIUM CARBONATE [Suspect]
     Indication: BIPOLAR DISORDER
  3. LAMOTRIGINE [Suspect]
     Indication: DEPRESSION
  4. BIPERIDEN [Suspect]
     Dosage: 1 mg

REACTIONS (2)
  - Neuroleptic malignant syndrome [Recovered/Resolved]
  - Drug ineffective [Unknown]
